FAERS Safety Report 16528198 (Version 1)
Quarter: 2019Q3

REPORT INFORMATION
  Report Type: Spontaneous
  Country: US (occurrence: US)
  Receive Date: 20190704
  Receipt Date: 20190704
  Transmission Date: 20191004
  Serious: No
  Sender: FDA-Public Use
  Company Number: US-IPSEN BIOPHARMACEUTICALS, INC.-2019-11466

PATIENT
  Age: 63 Year
  Sex: Female

DRUGS (7)
  1. JANUVIA [Concomitant]
     Active Substance: SITAGLIPTIN PHOSPHATE
  2. RESTYLANE [Suspect]
     Active Substance: HYALURONIC ACID
     Indication: SKIN COSMETIC PROCEDURE
  3. RESTYLANE [Suspect]
     Active Substance: HYALURONIC ACID
     Indication: SKIN COSMETIC PROCEDURE
  4. DYSPORT [Suspect]
     Active Substance: ABOBOTULINUMTOXINA
     Indication: SKIN WRINKLING
  5. RESTYLANE [Suspect]
     Active Substance: HYALURONIC ACID
     Indication: SKIN COSMETIC PROCEDURE
     Dates: start: 20190612, end: 20190612
  6. DYSPORT [Suspect]
     Active Substance: ABOBOTULINUMTOXINA
     Indication: SKIN WRINKLING
     Dosage: DOSE: NOT REPORTED
     Route: 030
     Dates: start: 20190611, end: 20190611
  7. DYSPORT [Suspect]
     Active Substance: ABOBOTULINUMTOXINA
     Indication: OFF LABEL USE

REACTIONS (5)
  - Asthenopia [Not Recovered/Not Resolved]
  - Off label use [Unknown]
  - Pain [Recovered/Resolved]
  - Feeling hot [Recovered/Resolved]
  - Swelling [Recovered/Resolved]

NARRATIVE: CASE EVENT DATE: 201906
